FAERS Safety Report 9822304 (Version 1)
Quarter: 2014Q1

REPORT INFORMATION
  Report Type: Spontaneous
  Country: US (occurrence: US)
  Receive Date: 20140116
  Receipt Date: 20140116
  Transmission Date: 20141002
  Serious: Yes (Death, Other)
  Sender: FDA-Public Use
  Company Number: US-JHP PHARMACEUTICALS, LLC-JHP201400002

PATIENT
  Age: 51 Year
  Sex: Male
  Weight: 77 kg

DRUGS (7)
  1. BREVITAL SODIUM FOR INJECTION [Suspect]
     Indication: INDUCTION OF ANAESTHESIA
     Dosage: 1 MG/KG, TOTAL = 80 MG
     Route: 042
  2. BREVITAL SODIUM FOR INJECTION [Suspect]
     Dosage: 60 MG, UNK
     Route: 042
  3. SUCCINYL CHOLINE [Suspect]
     Indication: ANAESTHESIA
     Dosage: 0.75 MG/KG, TOTAL=60MG
     Route: 042
  4. SUCCINYL CHOLINE [Suspect]
     Dosage: 40 MG, UNK
     Route: 042
  5. ROSUVASTATIN [Concomitant]
  6. QUETIAPINE FUMARAT [Concomitant]
  7. VENLAFAXINE [Concomitant]

REACTIONS (6)
  - Aspiration [Unknown]
  - Traumatic lung injury [Not Recovered/Not Resolved]
  - Sepsis [Fatal]
  - Multi-organ failure [Fatal]
  - Convulsion [Fatal]
  - Impaired gastric emptying [Fatal]
